FAERS Safety Report 8010724-5 (Version None)
Quarter: 2011Q4

REPORT INFORMATION
  Report Type: 
  Country: None (occurrence: None)
  Receive Date: 20111228
  Receipt Date: 20111219
  Transmission Date: 20120403
  Serious: Yes (Other)
  Sender: FDA-Public Use
  Company Number: CZ-JNJFOC-20111107021

PATIENT
  Sex: Female
  Weight: 85 kg

DRUGS (6)
  1. METHOTREXATE [Concomitant]
     Indication: RHEUMATOID ARTHRITIS
     Dosage: DOSE REPORTED AS 15,5 MG
     Dates: start: 19960404
  2. ALL OTHER THERAPEUTIC PRODUCTS [Concomitant]
     Indication: DEPRESSION
     Dates: start: 20020808
  3. MEDROL [Concomitant]
     Indication: RHEUMATOID ARTHRITIS
     Dates: start: 19990101
  4. ACIDUM FOLICUM [Concomitant]
     Indication: RHEUMATOID ARTHRITIS
     Dates: start: 19960404
  5. REMICADE [Suspect]
     Indication: RHEUMATOID ARTHRITIS
     Dosage: APPROXIMATE TOTAL NUMBER OF INFUSIONS RECEIVED=25
     Route: 042
     Dates: start: 20021213, end: 20061031
  6. FLAMEXIN [Concomitant]
     Dates: start: 20020601

REACTIONS (1)
  - DISSEMINATED TUBERCULOSIS [None]
